APPROVED DRUG PRODUCT: ICATIBANT ACETATE
Active Ingredient: ICATIBANT ACETATE
Strength: EQ 30MG BASE/3ML (EQ 10MG BASE/ML)
Dosage Form/Route: INJECTABLE;SUBCUTANEOUS
Application: A211021 | Product #001 | TE Code: AP
Applicant: JIANGSU HANSOH PHARMACEUTICAL GROUP CO LTD
Approved: Mar 9, 2020 | RLD: No | RS: No | Type: RX